FAERS Safety Report 5786558-9 (Version None)
Quarter: 2008Q2

REPORT INFORMATION
  Report Type: 
  Country: None (occurrence: None)
  Receive Date: 20080624
  Receipt Date: 20080527
  Transmission Date: 20081010
  Serious: No
  Sender: FDA-Public Use
  Company Number: US-BOEHRINGER INGELHEIM GMBH, GERMANY-2008-BP-08326BP

PATIENT
  Age: 71 Year
  Sex: Female

DRUGS (2)
  1. MICARDIS [Suspect]
     Indication: HYPERTENSION
     Dates: start: 20050101
  2. ATENOLOL [Suspect]
     Dates: start: 20050101

REACTIONS (9)
  - ARTHRALGIA [None]
  - ARTHRITIS [None]
  - BACK PAIN [None]
  - BRADYCARDIA [None]
  - DRUG INTOLERANCE [None]
  - FATIGUE [None]
  - HYPOTENSION [None]
  - MUSCULOSKELETAL PAIN [None]
  - MYALGIA [None]
